FAERS Safety Report 4402416-6 (Version None)
Quarter: 2004Q2

REPORT INFORMATION
  Report Type: 
  Country: None (occurrence: None)
  Receive Date: 20040618
  Receipt Date: 20040303
  Transmission Date: 20050107
  Serious: No
  Sender: FDA-Public Use
  Company Number: US-JNJFOC-20040301334

PATIENT
  Age: 32 Year
  Sex: Female
  Weight: 58.9676 kg

DRUGS (4)
  1. ORTHO EVRA [Suspect]
     Indication: CONTRACEPTION
     Dosage: 1 DOSE(S), 3 IN 4 WEEK, TRANSDERMAL
     Route: 062
  2. ANTIBIOTIC NOS (ANTIBIOTICS) [Concomitant]
  3. ALBUTERAL (SALBUTAMOL) [Concomitant]
  4. ADVAIR (SERETIDE MITE) [Concomitant]

REACTIONS (2)
  - METRORRHAGIA [None]
  - UTERINE SPASM [None]
